FAERS Safety Report 23214721 (Version 1)
Quarter: 2023Q4

REPORT INFORMATION
  Report Type: Spontaneous
  Country: US (occurrence: US)
  Receive Date: 20231121
  Receipt Date: 20231121
  Transmission Date: 20240109
  Serious: Yes (Other)
  Sender: FDA-Public Use
  Company Number: US-BRISTOL-MYERS SQUIBB COMPANY-2023-167205

PATIENT
  Age: 81 Year
  Sex: Male
  Weight: 72.574 kg

DRUGS (1)
  1. ELIQUIS [Suspect]
     Active Substance: APIXABAN
     Indication: Atrial fibrillation
     Dosage: FREQUENCY: TWICE DAILY
     Route: 048
     Dates: start: 20231026

REACTIONS (4)
  - Urinary retention [Unknown]
  - Benign prostatic hyperplasia [Unknown]
  - Haemorrhage urinary tract [Unknown]
  - Weight decreased [Unknown]
